FAERS Safety Report 11658769 (Version 1)
Quarter: 2015Q4

REPORT INFORMATION
  Report Type: Spontaneous
  Country: US (occurrence: None)
  Receive Date: 20151023
  Receipt Date: 20151023
  Transmission Date: 20160304
  Serious: Yes (Hospitalization)
  Sender: FDA-Public Use
  Company Number: None

PATIENT
  Age: 76 Year
  Sex: Male
  Weight: 70.5 kg

DRUGS (2)
  1. ALPRAZOLAM. [Suspect]
     Active Substance: ALPRAZOLAM
     Indication: ANXIETY
     Route: 048
     Dates: start: 20150511, end: 20150515
  2. MORPHINE [Suspect]
     Active Substance: MORPHINE
     Indication: PAIN
     Route: 048
     Dates: start: 20150511, end: 20150515

REACTIONS (14)
  - Tachycardia [None]
  - Alcohol use [None]
  - Lung infiltration [None]
  - Hypotension [None]
  - Miosis [None]
  - Gait disturbance [None]
  - Drug withdrawal syndrome [None]
  - Sepsis [None]
  - Acute myocardial infarction [None]
  - Constipation [None]
  - Delirium [None]
  - Acute kidney injury [None]
  - Mental status changes [None]
  - Dry mouth [None]

NARRATIVE: CASE EVENT DATE: 20150511
